FAERS Safety Report 12674852 (Version 1)
Quarter: 2016Q3

REPORT INFORMATION
  Report Type: Spontaneous
  Country: US (occurrence: US)
  Receive Date: 20160822
  Receipt Date: 20160822
  Transmission Date: 20161109
  Serious: No
  Sender: FDA-Public Use
  Company Number: US-RECKITT BENCKISER HEALTHCARE INT LIMITED-RB-87494-2016

PATIENT
  Age: 61 Year
  Sex: Female

DRUGS (1)
  1. MUCINEX [Suspect]
     Active Substance: GUAIFENESIN
     Indication: PRODUCT USED FOR UNKNOWN INDICATION
     Dosage: TOOK ONE TABLET AT 02:00, 03:00 AND 04:00 PM
     Route: 065
     Dates: start: 20160608, end: 20160608

REACTIONS (2)
  - Incorrect drug administration duration [Unknown]
  - Vomiting [Unknown]

NARRATIVE: CASE EVENT DATE: 20160608
